FAERS Safety Report 9208320 (Version 2)
Quarter: 2013Q2

REPORT INFORMATION
  Report Type: Spontaneous
  Country: PH (occurrence: PH)
  Receive Date: 20130403
  Receipt Date: 20130410
  Transmission Date: 20140414
  Serious: Yes (Death, Hospitalization, Other)
  Sender: FDA-Public Use
  Company Number: PH-009507513-1304PHL001332

PATIENT
  Age: 61 Year
  Sex: Male

DRUGS (1)
  1. JANUVIA [Suspect]
     Dosage: 1 DF, QD
     Route: 048

REACTIONS (7)
  - Death [Fatal]
  - Headache [Unknown]
  - Loss of consciousness [Unknown]
  - Dyspnoea [Unknown]
  - Gastrointestinal tube insertion [Unknown]
  - Eye movement disorder [Unknown]
  - Epistaxis [Unknown]
